FAERS Safety Report 16850630 (Version 1)
Quarter: 2019Q3

REPORT INFORMATION
  Report Type: Spontaneous
  Country: US (occurrence: US)
  Receive Date: 20190802
  Receipt Date: 20190802
  Transmission Date: 20191005
  Serious: Yes (Hospitalization)
  Sender: FDA-Public Use
  Company Number: None

PATIENT
  Age: 62 Year
  Sex: Female

DRUGS (23)
  1. NAPROXEN. [Concomitant]
     Active Substance: NAPROXEN
  2. SPIRONOLACTONE. [Concomitant]
     Active Substance: SPIRONOLACTONE
  3. VITAMIN D [Concomitant]
     Active Substance: VITAMIN D NOS
  4. DOCUSATE [Concomitant]
     Active Substance: DOCUSATE
  5. FOLIC ACID. [Concomitant]
     Active Substance: FOLIC ACID
  6. LOPERAMIDE [Concomitant]
     Active Substance: LOPERAMIDE
  7. FENTANYL. [Suspect]
     Active Substance: FENTANYL
     Indication: SEDATION
     Route: 042
     Dates: start: 20190605, end: 20190605
  8. MIDAZOLAM [Suspect]
     Active Substance: MIDAZOLAM HYDROCHLORIDE
     Route: 042
  9. BIOTIN [Concomitant]
     Active Substance: BIOTIN
  10. DIPHENHYDRAMINE. [Concomitant]
     Active Substance: DIPHENHYDRAMINE
  11. ONDANSETRON [Concomitant]
     Active Substance: ONDANSETRON
  12. ACETAMINOPHEN. [Concomitant]
     Active Substance: ACETAMINOPHEN
  13. CALCIUM [Concomitant]
     Active Substance: CALCIUM
  14. FERROUS SULFATE. [Concomitant]
     Active Substance: FERROUS SULFATE
  15. HYDROXYZINE [Concomitant]
     Active Substance: HYDROXYZINE HYDROCHLORIDE
  16. CIPROFLOXACIN. [Concomitant]
     Active Substance: CIPROFLOXACIN
  17. SUCCINATE [Concomitant]
  18. MULTIVITAMIN [Concomitant]
     Active Substance: VITAMINS
  19. VITAMIN B12 [Concomitant]
     Active Substance: CYANOCOBALAMIN
  20. METOPROLOL. [Concomitant]
     Active Substance: METOPROLOL
  21. FUROSEMIDE. [Concomitant]
     Active Substance: FUROSEMIDE
  22. LORAZAPAM [Concomitant]
     Active Substance: LORAZEPAM
  23. POTASSIUM CHLORIDE. [Concomitant]
     Active Substance: POTASSIUM CHLORIDE

REACTIONS (3)
  - Hypoxia [None]
  - Sedation complication [None]
  - Apnoea [None]

NARRATIVE: CASE EVENT DATE: 20190605
